FAERS Safety Report 12318109 (Version 1)
Quarter: 2016Q2

REPORT INFORMATION
  Report Type: Spontaneous
  Country: AT (occurrence: AT)
  Receive Date: 20160429
  Receipt Date: 20160429
  Transmission Date: 20160815
  Serious: Yes (Other)
  Sender: FDA-Public Use
  Company Number: AT-PFIZER INC-2016230871

PATIENT
  Sex: Male

DRUGS (1)
  1. SORTIS [Suspect]
     Active Substance: ATORVASTATIN
     Dosage: 80 MG, DAILY

REACTIONS (1)
  - Chlamydial infection [Unknown]

NARRATIVE: CASE EVENT DATE: 201604
